FAERS Safety Report 18936576 (Version 3)
Quarter: 2021Q3

REPORT INFORMATION
  Report Type: Report from Study
  Country: None (occurrence: US)
  Receive Date: 20210225
  Receipt Date: 20210925
  Transmission Date: 20211014
  Serious: Yes (Other)
  Sender: FDA-Public Use
  Company Number: US-ABBVIE-21K-163-3784208-00

PATIENT
  Sex: Female

DRUGS (2)
  1. HUMIRA [Suspect]
     Active Substance: ADALIMUMAB
     Dosage: DOSE INCREASED
     Route: 058
  2. HUMIRA [Suspect]
     Active Substance: ADALIMUMAB
     Indication: RHEUMATOID ARTHRITIS
     Route: 058

REACTIONS (8)
  - Gait disturbance [Unknown]
  - Arthropathy [Unknown]
  - Wound [Unknown]
  - Perforation [Unknown]
  - Head injury [Unknown]
  - Pyoderma gangrenosum [Not Recovered/Not Resolved]
  - Herpes zoster [Unknown]
  - Skin disorder [Unknown]
